FAERS Safety Report 17005732 (Version 1)
Quarter: 2019Q4

REPORT INFORMATION
  Report Type: Spontaneous
  Country: FR (occurrence: FR)
  Receive Date: 20191107
  Receipt Date: 20191107
  Transmission Date: 20200122
  Serious: Yes (Other)
  Sender: FDA-Public Use
  Company Number: FR-MYLANLABS-2019M1105996

PATIENT
  Age: 41 Year
  Sex: Female

DRUGS (2)
  1. KETOPROFENE                        /00321701/ [Concomitant]
     Active Substance: KETOPROFEN
     Indication: RENAL COLIC
     Dosage: 200 MILLIGRAM, QD
     Route: 048
     Dates: start: 20190402, end: 20190404
  2. ESOMEPRAZOLE MYLAN 20 MG, G?LULE GASTRO-R?SISTANTE [Suspect]
     Active Substance: ESOMEPRAZOLE
     Indication: PROPHYLAXIS AGAINST GASTROINTESTINAL ULCER
     Dosage: 1 DOSAGE FORM, QD
     Route: 048
     Dates: start: 20190402, end: 20190404

REACTIONS (1)
  - Drug ineffective [Recovered/Resolved]

NARRATIVE: CASE EVENT DATE: 20190404
